FAERS Safety Report 7902041-6 (Version None)
Quarter: 2011Q4

REPORT INFORMATION
  Report Type: 
  Country: None (occurrence: None)
  Receive Date: 20111108
  Receipt Date: 20111028
  Transmission Date: 20120403
  Serious: Yes (Other)
  Sender: FDA-Public Use
  Company Number: BR-GLAXOSMITHKLINE-A0952042A

PATIENT
  Sex: Female
  Weight: 83.7 kg

DRUGS (5)
  1. LEVOTHYROXINE SODIUM [Suspect]
     Dosage: 100MG IN THE MORNING
     Dates: start: 20080101
  2. FLUTICASONE PROPIONATE/SALMETEROL [Suspect]
     Indication: BRONCHITIS
     Route: 065
     Dates: start: 20100101, end: 20111022
  3. FOLIC ACID [Concomitant]
     Dosage: 5MG IN THE MORNING
     Dates: start: 20111024
  4. PARACETAMOL [Concomitant]
     Indication: HEADACHE
     Dosage: 750MG AS REQUIRED
     Dates: start: 20111027
  5. FLUTICASONE PROPIONATE/SALMETEROL [Suspect]
     Route: 065
     Dates: start: 20111022

REACTIONS (4)
  - DRUG ADMINISTRATION ERROR [None]
  - HAEMORRHAGE [None]
  - ABORTION THREATENED [None]
  - MATERNAL EXPOSURE DURING PREGNANCY [None]
